FAERS Safety Report 14203947 (Version 3)
Quarter: 2017Q4

REPORT INFORMATION
  Report Type: Report from Study
  Country: TW (occurrence: TW)
  Receive Date: 20171120
  Receipt Date: 20171208
  Transmission Date: 20180321
  Serious: Yes (Death)
  Sender: FDA-Public Use
  Company Number: TW-ASTRAZENECA-2017SF16162

PATIENT

DRUGS (1)
  1. OLAPARIB. [Suspect]
     Active Substance: OLAPARIB
     Dosage: 50 MG - CAPSULE - 1 X 120
     Route: 048
     Dates: end: 20171021

REACTIONS (1)
  - Death [Fatal]
